FAERS Safety Report 24892680 (Version 2)
Quarter: 2025Q1

REPORT INFORMATION
  Report Type: Report from Study
  Country: NL (occurrence: NL)
  Receive Date: 20250128
  Receipt Date: 20250201
  Transmission Date: 20250409
  Serious: Yes (Hospitalization, Other)
  Sender: ABBVIE
  Company Number: NL-ABBVIE-6102612

PATIENT
  Age: 81 Year
  Sex: Male

DRUGS (2)
  1. IBRUTINIB [Suspect]
     Active Substance: IBRUTINIB
     Indication: Product used for unknown indication
     Route: 048
     Dates: start: 20220712, end: 20250105
  2. VENETOCLAX [Suspect]
     Active Substance: VENETOCLAX
     Indication: Product used for unknown indication
     Route: 048
     Dates: start: 20220712, end: 20230413

REACTIONS (5)
  - Metastatic neoplasm [Unknown]
  - Gastric stenosis [Recovered/Resolved]
  - Focal peritonitis [Unknown]
  - Metastases to abdominal wall [Unknown]
  - Abdominal discomfort [Unknown]

NARRATIVE: CASE EVENT DATE: 20241230
